FAERS Safety Report 15308437 (Version 2)
Quarter: 2019Q2

REPORT INFORMATION
  Report Type: Spontaneous
  Country: FR (occurrence: FR)
  Receive Date: 20180822
  Receipt Date: 20190418
  Transmission Date: 20190711
  Serious: Yes (Hospitalization)
  Sender: FDA-Public Use
  Company Number: FR-PFIZER INC-2018315067

PATIENT
  Age: 39 Year
  Sex: Female

DRUGS (3)
  1. PROLUTON [PROGESTERONE] [Suspect]
     Active Substance: PROGESTERONE
     Indication: AMENORRHOEA
     Dosage: UNK
     Dates: start: 1963
  2. ESTRADIOL. [Suspect]
     Active Substance: ESTRADIOL
     Indication: AMENORRHOEA
     Dosage: UNK (INJECTION)
     Dates: start: 1963
  3. SUPPONERYL [Concomitant]
     Indication: SEDATION
     Dosage: UNK UNK, DAILY (TAKING 1)
     Dates: start: 196303

REACTIONS (1)
  - Acquired porphyria [Recovering/Resolving]

NARRATIVE: CASE EVENT DATE: 196305
